FAERS Safety Report 5187190-0 (Version None)
Quarter: 2006Q4

REPORT INFORMATION
  Report Type: 
  Country: None (occurrence: None)
  Receive Date: 20061214
  Receipt Date: 20061204
  Transmission Date: 20070319
  Serious: Yes (Life-Threatening, Disabling)
  Sender: FDA-Public Use
  Company Number: 2006150444

PATIENT
  Age: 63 Year
  Sex: Male
  Weight: 93 kg

DRUGS (2)
  1. ATORVASTATIN CALCIUM [Suspect]
     Indication: BLOOD CHOLESTEROL
     Dosage: ORAL
     Route: 048
     Dates: start: 20050201, end: 20061001
  2. LANSOPRAZOLE [Concomitant]

REACTIONS (1)
  - ALVEOLITIS FIBROSING [None]
